FAERS Safety Report 5024262-5 (Version None)
Quarter: 2006Q2

REPORT INFORMATION
  Report Type: 
  Country: None (occurrence: None)
  Receive Date: 20060426
  Receipt Date: 20060310
  Transmission Date: 20061013
  Serious: Yes (Other)
  Sender: FDA-Public Use
  Company Number: 2006042645

PATIENT
  Sex: Female

DRUGS (8)
  1. LYRICA [Suspect]
     Indication: HEADACHE
     Dosage: 50 MG (25 MG, 2 IN 1 D)
     Dates: start: 20050101
  2. LYRICA [Suspect]
     Indication: PAIN
     Dosage: 50 MG (25 MG, 2 IN 1 D)
     Dates: start: 20050101
  3. METHADONE HCL [Concomitant]
  4. HYDROMORPHONE HCL [Concomitant]
  5. LOPRESSOR [Concomitant]
  6. ALL OTHER THERAPEUTIC PRODUCTS [Concomitant]
  7. HYDROXYZINE PAMOATE [Concomitant]
  8. ACETYLSALICYLIC ACID SRT [Concomitant]

REACTIONS (4)
  - DRUG INEFFECTIVE [None]
  - HUNGER [None]
  - LACK OF SATIETY [None]
  - WEIGHT INCREASED [None]
